FAERS Safety Report 9229074 (Version 2)
Quarter: 2019Q2

REPORT INFORMATION
  Report Type: Spontaneous
  Country: US (occurrence: US)
  Receive Date: 20130412
  Receipt Date: 20190429
  Transmission Date: 20190711
  Serious: Yes (Hospitalization, Other)
  Sender: FDA-Public Use
  Company Number: US-PFIZER INC-2013114981

PATIENT
  Age: 56 Year
  Sex: Female
  Weight: 68.27 kg

DRUGS (1)
  1. RAPAMUNE [Suspect]
     Active Substance: SIROLIMUS
     Indication: LIVER TRANSPLANT
     Dosage: 0.5 MG, DAILY (0.5MG BROWN TABLET BY MOUTH DAILY)
     Route: 048
     Dates: start: 2009

REACTIONS (4)
  - Product use in unapproved indication [Unknown]
  - Coma [Unknown]
  - Liver disorder [Unknown]
  - Brain injury [Unknown]

NARRATIVE: CASE EVENT DATE: 2009
